FAERS Safety Report 9844962 (Version 1)
Quarter: 2014Q1

REPORT INFORMATION
  Report Type: Spontaneous
  Country: US (occurrence: US)
  Receive Date: 20140127
  Receipt Date: 20140127
  Transmission Date: 20141002
  Serious: Yes (Disabling)
  Sender: FDA-Public Use
  Company Number: US-GE HEALTHCARE MEDICAL DIAGNOSTICS-OSCN-PR-1312S-0156

PATIENT
  Age: 45 Year
  Sex: Male

DRUGS (16)
  1. OMNISCAN [Suspect]
     Indication: OSTEOMYELITIS
     Dates: start: 20020724, end: 20020724
  2. OMNISCAN [Suspect]
     Indication: OSTEOMYELITIS
     Dates: start: 20041014, end: 20041014
  3. OMNISCAN [Suspect]
     Indication: ROAD TRAFFIC ACCIDENT
     Dates: start: 20041109, end: 20041109
  4. HUMULIN REGULAR INSULIN [Concomitant]
  5. HUMULIN N INSULIN [Concomitant]
  6. EPOGEN [Concomitant]
  7. FERLECIT [Concomitant]
  8. DIOVAN [Concomitant]
  9. PLAVIX [Concomitant]
  10. PHOSLO [Concomitant]
  11. RENAGEL [Concomitant]
  12. VENOFER [Concomitant]
  13. PERCOCET [Concomitant]
  14. ACETAMINOPHEN [Concomitant]
  15. SORBITOL [Concomitant]
  16. VANCOMYCIN [Concomitant]

REACTIONS (1)
  - Nephrogenic systemic fibrosis [Not Recovered/Not Resolved]
